FAERS Safety Report 8838126 (Version 1)
Quarter: 2012Q4

REPORT INFORMATION
  Report Type: 
  Country: US (occurrence: US)
  Receive Date: 20121012
  Receipt Date: 20121012
  Transmission Date: 20130627
  Serious: Yes (Hospitalization, Other)
  Sender: FDA-Public Use
  Company Number: US-ROCHE-CID000000002126242

PATIENT
  Sex: Female

DRUGS (2)
  1. RITUXAN [Suspect]
     Indication: CHRONIC LYMPHOCYTIC LEUKAEMIA
     Route: 065
  2. PENTOSTATIN [Concomitant]

REACTIONS (14)
  - Abdominal pain [Unknown]
  - Anaemia [Unknown]
  - Gingival bleeding [Unknown]
  - Thrombocytopenia [Unknown]
  - Epistaxis [Unknown]
  - Disturbance in attention [Unknown]
  - Amnesia [Unknown]
  - Weight decreased [Unknown]
  - Dysphonia [Unknown]
  - Dyspnoea [Unknown]
  - Fatigue [Unknown]
  - Malaise [Unknown]
  - Pain [Unknown]
  - Asthenia [Unknown]
